FAERS Safety Report 17124759 (Version 1)
Quarter: 2019Q4

REPORT INFORMATION
  Report Type: Spontaneous
  Country: MY (occurrence: MY)
  Receive Date: 20191206
  Receipt Date: 20191206
  Transmission Date: 20200122
  Serious: Yes (Other)
  Sender: FDA-Public Use
  Company Number: MY-009507513-1912MYS003055

PATIENT
  Age: 21 Month
  Sex: Female

DRUGS (1)
  1. NASONEX [Suspect]
     Active Substance: MOMETASONE FUROATE
     Indication: RHINITIS ALLERGIC
     Dosage: DOSE: 1 DF, DOSE INTERVAL: 1 DAY(S)
     Route: 045

REACTIONS (1)
  - Nasal congestion [Recovering/Resolving]
